FAERS Safety Report 8898408 (Version 1)
Quarter: 2012Q4

REPORT INFORMATION
  Report Type: 
  Country: US (occurrence: US)
  Receive Date: 20121108
  Receipt Date: 20121108
  Transmission Date: 20130627
  Serious: No
  Sender: FDA-Public Use
  Company Number: US-AMGEN-USASP2012024022

PATIENT
  Age: 60 Year
  Sex: Female
  Weight: 93.88 kg

DRUGS (13)
  1. ENBREL [Suspect]
     Indication: PRODUCT USED FOR UNKNOWN INDICATION
     Dosage: 50 mg, qwk
     Route: 058
  2. AZO-STANDARD [Concomitant]
     Dosage: 95 mg, UNK
  3. FLEXERIL                           /00428402/ [Concomitant]
     Dosage: 10 mg, UNK
  4. LIPITOR [Concomitant]
     Dosage: 10 mg, UNK
  5. VITAMIN D                          /00318501/ [Concomitant]
     Dosage: 50000 UNK, UNK
  6. NADOLOL [Concomitant]
     Dosage: 40 mg, UNK
  7. XANAX [Concomitant]
     Dosage: 1 mg, UNK
  8. AMBIEN [Concomitant]
     Dosage: 10 mg, UNK
  9. IMITREX                            /01044801/ [Concomitant]
     Dosage: 25 mg, UNK
  10. CIPRO                              /00697201/ [Concomitant]
     Dosage: 250 mg, UNK
  11. EXALGO [Concomitant]
     Dosage: 8 mg, UNK
  12. TOPAMAX [Concomitant]
     Dosage: 100 mg, UNK
  13. HYDROCODONE W/APAP                 /01554201/ [Concomitant]
     Dosage: UNK

REACTIONS (1)
  - Haemorrhage [Recovered/Resolved]
